FAERS Safety Report 4650831-8 (Version None)
Quarter: 2005Q2

REPORT INFORMATION
  Report Type: 
  Country: None (occurrence: None)
  Receive Date: 20050429
  Receipt Date: 20050429
  Transmission Date: 20051028
  Serious: Yes (Death)
  Sender: FDA-Public Use
  Company Number: None

PATIENT
  Sex: Male

DRUGS (2)
  1. CELEBREX [Suspect]
     Indication: OSTEOARTHRITIS
     Dosage: 100MG PO BID
     Route: 048
     Dates: start: 20040226
  2. COUMADIN [Suspect]
     Indication: ATRIAL FIBRILLATION
     Dosage: 1 MG PO QHS
     Route: 048
     Dates: start: 20040221

REACTIONS (11)
  - ANURIA [None]
  - ATRIOVENTRICULAR BLOCK COMPLETE [None]
  - CARDIAC ARREST [None]
  - CENTRAL LINE INFECTION [None]
  - DIALYSIS [None]
  - HYPOTENSION [None]
  - HYPOXIA [None]
  - IRRITABILITY [None]
  - METABOLIC ACIDOSIS [None]
  - PNEUMONIA STAPHYLOCOCCAL [None]
  - SEPSIS [None]
